FAERS Safety Report 10264709 (Version 1)
Quarter: 2014Q2

REPORT INFORMATION
  Report Type: Spontaneous
  Country: CA (occurrence: CA)
  Receive Date: 20140627
  Receipt Date: 20140627
  Transmission Date: 20141212
  Serious: Yes (Hospitalization)
  Sender: FDA-Public Use
  Company Number: CA-B.I. PHARMACEUTICALS,INC./RIDGEFIELD-2014-BI-28693CN

PATIENT
  Age: 73 Year
  Sex: Female
  Weight: 88 kg

DRUGS (6)
  1. MICARDIS PLUS [Suspect]
     Indication: PRODUCT USED FOR UNKNOWN INDICATION
     Dosage: DOSE PER APPLICATION: 1.5 DOSAGE FORMS
     Route: 048
  2. CITALOPRAM [Concomitant]
     Route: 048
  3. ENTERIC COATED A.S.A. [Concomitant]
     Dosage: FORMULATION: TABLET DELAYED RELEASE
     Route: 048
  4. FOSAVANCE [Concomitant]
     Route: 048
  5. LORAZEPAM [Concomitant]
     Route: 048
  6. VITAMIN D [Concomitant]
     Route: 048

REACTIONS (9)
  - Bilevel positive airway pressure [Unknown]
  - Diarrhoea [Unknown]
  - Respiratory distress [Unknown]
  - Endotracheal intubation [Unknown]
  - Hypotension [Unknown]
  - Nausea [Unknown]
  - Pigmentation disorder [Unknown]
  - Pulmonary oedema [Unknown]
  - Vomiting [Unknown]
